FAERS Safety Report 16090470 (Version 1)
Quarter: 2019Q1

REPORT INFORMATION
  Report Type: Spontaneous
  Country: US (occurrence: US)
  Receive Date: 20190319
  Receipt Date: 20190319
  Transmission Date: 20190418
  Serious: No
  Sender: FDA-Public Use
  Company Number: US-TARO-2019TAR00106

PATIENT
  Sex: Male

DRUGS (1)
  1. OXICONAZOLE NITRATE CREAM 1% [Suspect]
     Active Substance: OXICONAZOLE NITRATE
     Dosage: UNK, 1X/DAY BEFORE BED AS DIRECTED
     Route: 061

REACTIONS (1)
  - Application site pain [Unknown]
